FAERS Safety Report 12864739 (Version 5)
Quarter: 2016Q4

REPORT INFORMATION
  Report Type: Spontaneous
  Country: JP (occurrence: JP)
  Receive Date: 20161020
  Receipt Date: 20161219
  Transmission Date: 20170207
  Serious: Yes (Death, Hospitalization)
  Sender: FDA-Public Use
  Company Number: PHJP2016JP029465

PATIENT
  Age: 73 Year
  Sex: Male
  Weight: 58 kg

DRUGS (1)
  1. COSENTYX [Suspect]
     Active Substance: SECUKINUMAB
     Indication: PSORIASIS
     Dosage: 300 MG, UNK
     Route: 058
     Dates: start: 20161011, end: 20161011

REACTIONS (9)
  - Concomitant disease aggravated [Fatal]
  - Septic shock [Recovered/Resolved]
  - Malaise [Unknown]
  - Pyrexia [Unknown]
  - Pancreatitis [Recovering/Resolving]
  - Abdominal pain upper [Unknown]
  - Retroperitoneal abscess [Fatal]
  - Nausea [Unknown]
  - Vomiting [Unknown]

NARRATIVE: CASE EVENT DATE: 20161011
